FAERS Safety Report 12428632 (Version 2)
Quarter: 2016Q2

REPORT INFORMATION
  Report Type: Report from Study
  Country: BR (occurrence: BR)
  Receive Date: 20160602
  Receipt Date: 20160617
  Transmission Date: 20160815
  Serious: Yes (Other)
  Sender: FDA-Public Use
  Company Number: ALCN2016BR003855

PATIENT
  Sex: Male
  Weight: 95 kg

DRUGS (1)
  1. VITALUX PLUS [Suspect]
     Active Substance: VITAMINS
     Indication: RETINAL DISORDER
     Dosage: 2 DF, QD
     Route: 048
     Dates: start: 201510

REACTIONS (1)
  - Cataract [Recovered/Resolved]
